FAERS Safety Report 15986362 (Version 2)
Quarter: 2019Q1

REPORT INFORMATION
  Report Type: Spontaneous
  Country: JP (occurrence: JP)
  Receive Date: 20190220
  Receipt Date: 20190329
  Transmission Date: 20190418
  Serious: Yes (Other)
  Sender: FDA-Public Use
  Company Number: GXJP2019JP000576

PATIENT
  Weight: .74 kg

DRUGS (5)
  1. HEPARIN SODIUM. [Suspect]
     Active Substance: HEPARIN SODIUM
     Indication: FOETAL EXPOSURE DURING PREGNANCY
     Dosage: UNK
     Route: 064
  2. BETAMETHASONE. [Suspect]
     Active Substance: BETAMETHASONE
     Indication: FOETAL EXPOSURE DURING PREGNANCY
     Dosage: DOSE RECEIVED BY MOTHER: 12 MG, UNK
     Route: 064
  3. HEPARIN SODIUM. [Suspect]
     Active Substance: HEPARIN SODIUM
     Dosage: UNK
     Route: 064
  4. RITODRINE [Suspect]
     Active Substance: RITODRINE
     Indication: FOETAL EXPOSURE DURING PREGNANCY
     Dosage: UNK
     Route: 064
  5. CARBAZOCHROME SODIUM SULFONATE [Suspect]
     Active Substance: CARBAZOCHROME SODIUM SULFONATE
     Indication: FOETAL EXPOSURE DURING PREGNANCY
     Dosage: DOSE RECEIVED BY MOTHER: 30 MG, UNK
     Route: 064

REACTIONS (7)
  - Premature baby [Unknown]
  - Baseline foetal heart rate variability disorder [Unknown]
  - Foetal exposure during pregnancy [Unknown]
  - Foetal growth restriction [Unknown]
  - Foetal disorder [Unknown]
  - Low birth weight baby [Unknown]
  - Foetal heart rate deceleration abnormality [Unknown]
